FAERS Safety Report 25825226 (Version 1)
Quarter: 2025Q3

REPORT INFORMATION
  Report Type: Spontaneous
  Country: CN (occurrence: CN)
  Receive Date: 20250919
  Receipt Date: 20250919
  Transmission Date: 20251021
  Serious: Yes (Hospitalization)
  Sender: ALCON
  Company Number: CN-ALCON LABORATORIES-ALC2025CN004874

PATIENT
  Age: 81 Year
  Sex: Female
  Weight: 45 kg

DRUGS (2)
  1. FLUORESCEIN SODIUM [Suspect]
     Active Substance: FLUORESCEIN SODIUM
     Indication: Angiogram retina
     Route: 042
     Dates: start: 20250908, end: 20250908
  2. INDOCYANINE GREEN [Concomitant]
     Active Substance: INDOCYANINE GREEN
     Indication: Fluorescence angiogram
     Route: 042
     Dates: start: 20250908, end: 20250908

REACTIONS (5)
  - Pruritus [Recovering/Resolving]
  - Dizziness [Recovering/Resolving]
  - Chest discomfort [Recovering/Resolving]
  - Palpitations [Recovering/Resolving]
  - Asthenia [Recovering/Resolving]

NARRATIVE: CASE EVENT DATE: 20250908
